FAERS Safety Report 23930188 (Version 1)
Quarter: 2024Q2

REPORT INFORMATION
  Report Type: Spontaneous
  Country: FR (occurrence: FR)
  Receive Date: 20240602
  Receipt Date: 20240602
  Transmission Date: 20240716
  Serious: Yes (Life-Threatening, Hospitalization)
  Sender: FDA-Public Use
  Company Number: None

PATIENT
  Age: 81 Year
  Sex: Female
  Weight: 67 kg

DRUGS (3)
  1. BACTRIM [Suspect]
     Active Substance: SULFAMETHOXAZOLE\TRIMETHOPRIM
     Indication: Prophylactic chemotherapy
     Dosage: 1 CP LUNDI/ 1 CP MERCREDI/ 1 CP VENDREDI
     Route: 065
     Dates: start: 20240116, end: 20240424
  2. CYCLOPHOSPHAMIDE [Suspect]
     Active Substance: CYCLOPHOSPHAMIDE
     Indication: Mucous membrane pemphigoid
     Dosage: 75 MG/JOUR (100 MG JOURS IMPAIRS, 50MG JOURS PAIRS)
     Route: 065
     Dates: start: 20240221, end: 20240424
  3. VALACYCLOVIR HYDROCHLORIDE [Suspect]
     Active Substance: VALACYCLOVIR HYDROCHLORIDE
     Indication: Prophylactic chemotherapy
     Dosage: 500 MG, QD
     Route: 065
     Dates: start: 20240116, end: 20240424

REACTIONS (1)
  - Agranulocytosis [Recovered/Resolved]

NARRATIVE: CASE EVENT DATE: 20240424
